FAERS Safety Report 11787247 (Version 2)
Quarter: 2015Q4

REPORT INFORMATION
  Report Type: Spontaneous
  Country: TW (occurrence: TW)
  Receive Date: 20151130
  Receipt Date: 20151130
  Transmission Date: 20160305
  Serious: Yes (Hospitalization, Other)
  Sender: FDA-Public Use
  Company Number: TW-ACTAVIS-2015-16624

PATIENT
  Age: 38 Year
  Sex: Male

DRUGS (3)
  1. ESCITALOPRAM [Interacting]
     Active Substance: ESCITALOPRAM OXALATE
     Indication: DEPRESSION
     Dosage: 10 MG/D
     Route: 065
  2. GRISEOFULVIN (UNKNOWN) [Interacting]
     Active Substance: GRISEOFULVIN
     Indication: ONYCHOMYCOSIS
     Dosage: 500 MG, DAILY
     Route: 065
  3. DISULFIRAM (UNKNOWN) [Suspect]
     Active Substance: DISULFIRAM
     Indication: ALCOHOLISM
     Dosage: 200 MG, DAILY
     Route: 065

REACTIONS (4)
  - Drug interaction [Unknown]
  - Alcoholism [None]
  - Refusal of treatment by patient [None]
  - Delirium [Recovered/Resolved]
